FAERS Safety Report 8973211 (Version 1)
Quarter: 2012Q4

REPORT INFORMATION
  Report Type: 
  Country: US (occurrence: US)
  Receive Date: 20121218
  Receipt Date: 20121218
  Transmission Date: 20130627
  Serious: Yes (Other)
  Sender: FDA-Public Use
  Company Number: US-PFIZER INC-2012314883

PATIENT
  Age: 78 Year
  Sex: Male

DRUGS (1)
  1. BOSUTINIB [Suspect]
     Indication: CHRONIC MYELOGENOUS LEUKEMIA
     Dosage: UNK

REACTIONS (1)
  - Tumour lysis syndrome [Unknown]
